FAERS Safety Report 9351008 (Version 1)
Quarter: 2013Q2

REPORT INFORMATION
  Report Type: Spontaneous
  Country: US (occurrence: US)
  Receive Date: 20130617
  Receipt Date: 20130617
  Transmission Date: 20140414
  Serious: Yes (Disabling)
  Sender: FDA-Public Use
  Company Number: US-SANOFI-AVENTIS-2013SA059751

PATIENT
  Age: 65 Year
  Sex: Female

DRUGS (1)
  1. DEMEROL [Suspect]
     Indication: PAIN
     Route: 048
     Dates: start: 20121123

REACTIONS (7)
  - Walking disability [Not Recovered/Not Resolved]
  - Pain [Not Recovered/Not Resolved]
  - Asthenia [Unknown]
  - Dyspnoea [Unknown]
  - Tremor [Unknown]
  - Therapeutic response decreased [Unknown]
  - Incorrect dose administered [Unknown]
